FAERS Safety Report 13392683 (Version 1)
Quarter: 2017Q1

REPORT INFORMATION
  Report Type: Spontaneous
  Country: US (occurrence: US)
  Receive Date: 20170331
  Receipt Date: 20170331
  Transmission Date: 20170429
  Serious: No
  Sender: FDA-Public Use
  Company Number: US-MYLANLABS-2016M1051438

PATIENT
  Age: 55 Year
  Sex: Male
  Weight: 68.27 kg

DRUGS (1)
  1. FENTANYL TRANSDERMAL SYSTEM [Suspect]
     Active Substance: FENTANYL
     Indication: OROPHARYNGEAL PAIN
     Dosage: 50 ?G, QH, CHANGE Q72H
     Route: 062
     Dates: start: 201610

REACTIONS (1)
  - Drug ineffective [Not Recovered/Not Resolved]

NARRATIVE: CASE EVENT DATE: 20161123
